FAERS Safety Report 5042576-X (Version None)
Quarter: 2006Q2

REPORT INFORMATION
  Report Type: 
  Country: None (occurrence: None)
  Receive Date: 20060627
  Receipt Date: 20060612
  Transmission Date: 20061013
  Serious: Yes (Other)
  Sender: FDA-Public Use
  Company Number: 2006076197

PATIENT
  Age: 59 Year
  Sex: Female

DRUGS (1)
  1. UNASYN [Suspect]
     Indication: PNEUMONIA
     Dosage: 6 GRAM , INTRAVENOUS
     Route: 042
     Dates: start: 20060607, end: 20060611

REACTIONS (1)
  - ENTEROCOLITIS HAEMORRHAGIC [None]
